FAERS Safety Report 10283287 (Version 1)
Quarter: 2014Q3

REPORT INFORMATION
  Report Type: Spontaneous
  Country: US (occurrence: None)
  Receive Date: 20140702
  Receipt Date: 20140702
  Transmission Date: 20150326
  Serious: No
  Sender: FDA-Public Use
  Company Number: None

PATIENT
  Age: 40 Year
  Sex: Female

DRUGS (1)
  1. DESOGESTREL-ETHINYL ESTRADIOL [Suspect]
     Active Substance: DESOGESTREL\ETHINYL ESTRADIOL
     Dates: start: 20101105, end: 20110103

REACTIONS (2)
  - Rash generalised [None]
  - Product substitution issue [None]

NARRATIVE: CASE EVENT DATE: 2010
